FAERS Safety Report 25640186 (Version 1)
Quarter: 2025Q3

REPORT INFORMATION
  Report Type: Spontaneous
  Country: US (occurrence: None)
  Receive Date: 20250801
  Receipt Date: 20250801
  Transmission Date: 20251021
  Serious: Yes (Hospitalization)
  Sender: FDA-CTU
  Company Number: None

PATIENT
  Age: 74 Year
  Sex: Male
  Weight: 72 kg

DRUGS (1)
  1. WELIREG [Suspect]
     Active Substance: BELZUTIFAN
     Indication: Von Hippel-Lindau disease
     Dosage: 80 MG DAILY ORAL
     Route: 048
     Dates: start: 20250620

REACTIONS (4)
  - Haemoglobin decreased [None]
  - Transfusion [None]
  - Mineral supplementation [None]
  - Oxygen saturation decreased [None]

NARRATIVE: CASE EVENT DATE: 20250731
